FAERS Safety Report 24762793 (Version 1)
Quarter: 2024Q4

REPORT INFORMATION
  Report Type: Spontaneous
  Country: US (occurrence: US)
  Receive Date: 20241222
  Receipt Date: 20241222
  Transmission Date: 20250115
  Serious: No
  Sender: SANOFI AVENTIS
  Company Number: US-SA-2024SA376338

PATIENT
  Age: 2 Year
  Sex: Male

DRUGS (1)
  1. DUPIXENT [Suspect]
     Active Substance: DUPILUMAB
     Indication: Eczema
     Dosage: 200 MG, Q4W
     Route: 058
     Dates: start: 20241028

REACTIONS (2)
  - Ear infection [Recovering/Resolving]
  - Pharyngitis [Recovering/Resolving]

NARRATIVE: CASE EVENT DATE: 20240101
